FAERS Safety Report 5360743-2 (Version None)
Quarter: 2007Q2

REPORT INFORMATION
  Report Type: 
  Country: None (occurrence: None)
  Receive Date: 20070618
  Receipt Date: 20070612
  Transmission Date: 20071010
  Serious: Yes (Life-Threatening)
  Sender: FDA-Public Use
  Company Number: JP-ASTRAZENECA-2007AP00668

PATIENT
  Age: 29723 Day
  Sex: Male
  Weight: 45 kg

DRUGS (3)
  1. ANAPEINE [Suspect]
     Indication: ANAESTHESIA
     Route: 065
     Dates: start: 20061121, end: 20061121
  2. NEUROTROPIN [Suspect]
     Indication: ANAESTHESIA
     Dates: start: 20061121, end: 20061121
  3. INFLUENZA HA VACCINE [Suspect]
     Indication: INFLUENZA IMMUNISATION
     Route: 058
     Dates: start: 20061121, end: 20061121

REACTIONS (1)
  - SHOCK [None]
